FAERS Safety Report 5442515-3 (Version None)
Quarter: 2007Q3

REPORT INFORMATION
  Report Type: 
  Country: None (occurrence: None)
  Receive Date: 20070731
  Receipt Date: 20070612
  Transmission Date: 20080115
  Serious: No
  Sender: FDA-Public Use
  Company Number: US200706003313

PATIENT
  Age: 47 Year
  Sex: Female
  Weight: 195.9 kg

DRUGS (3)
  1. BYETTA [Suspect]
     Indication: DIABETES MELLITUS
     Dosage: 5 UG, 2/D, SUBCUTANEOUS
     Route: 058
     Dates: start: 20070612
  2. EXENATIDE [Concomitant]
  3. GLUCOTROL [Concomitant]

REACTIONS (4)
  - ABDOMINAL DISTENSION [None]
  - DIZZINESS [None]
  - DRY MOUTH [None]
  - ENERGY INCREASED [None]
